FAERS Safety Report 5072952-0 (Version None)
Quarter: 2006Q3

REPORT INFORMATION
  Report Type: 
  Country: None (occurrence: None)
  Receive Date: 20060802
  Receipt Date: 20060720
  Transmission Date: 20061208
  Serious: Yes (Hospitalization, Other)
  Sender: FDA-Public Use
  Company Number: 2006084607

PATIENT
  Age: 41 Year
  Sex: Male

DRUGS (4)
  1. VFEND [Suspect]
     Indication: FUNGAL INFECTION
     Dosage: 400 MG (200 MG, EVERY 12 HOURS); INTRAVENOUS
     Route: 042
     Dates: start: 20060628, end: 20060629
  2. VFEND [Suspect]
     Indication: FUNGAL INFECTION
     Dosage: ORAL
     Route: 048
     Dates: start: 20060630, end: 20060630
  3. INVANZ (ERTAPENEM SODIUM) [Concomitant]
  4. AMIKIN [Concomitant]

REACTIONS (6)
  - BLINDNESS [None]
  - DIPLOPIA [None]
  - DRUG INEFFECTIVE [None]
  - HALLUCINATION [None]
  - VERTIGO [None]
  - VISION BLURRED [None]
